FAERS Safety Report 16149450 (Version 1)
Quarter: 2019Q2

REPORT INFORMATION
  Report Type: Spontaneous
  Country: CZ (occurrence: CZ)
  Receive Date: 20190402
  Receipt Date: 20190402
  Transmission Date: 20190711
  Serious: Yes (Other)
  Sender: FDA-Public Use
  Company Number: CZ-MYLANLABS-2019M1028518

PATIENT
  Age: 21 Year
  Sex: Female
  Weight: 49 kg

DRUGS (2)
  1. KVENTIAX [Concomitant]
     Active Substance: QUETIAPINE FUMARATE
     Dosage: 200 MILLIGRAM(LONG-TERM MEDICATION, DOSAGE 0-0-1)
     Route: 048
  2. KLACID [Suspect]
     Active Substance: CLARITHROMYCIN
     Indication: PRODUCT USED FOR UNKNOWN INDICATION
     Dosage: 250 MILLIGRAM, BID(1 TABLET EVERY 12 HOURS)
     Route: 048
     Dates: start: 20171003, end: 20171006

REACTIONS (2)
  - Nightmare [Unknown]
  - Sleep terror [Unknown]

NARRATIVE: CASE EVENT DATE: 20171003
